FAERS Safety Report 8426133-0 (Version None)
Quarter: 2012Q2

REPORT INFORMATION
  Report Type: 
  Country: None (occurrence: None)
  Receive Date: 20120611
  Receipt Date: 20120604
  Transmission Date: 20120825
  Serious: No
  Sender: FDA-Public Use
  Company Number: CA-JNJFOC-20120601977

PATIENT
  Sex: Female

DRUGS (13)
  1. ASCORBIC ACID [Concomitant]
     Route: 065
  2. FOSAMAX [Concomitant]
     Route: 065
  3. CAL-MAG [Concomitant]
     Route: 065
  4. METHOTREXATE [Concomitant]
     Route: 065
     Dates: start: 20120425
  5. OMEGA 3-6-9 [Concomitant]
     Route: 065
  6. ACIDOPHILUS [Concomitant]
     Route: 065
  7. VITAMIN B COMPLEX CAP [Concomitant]
     Route: 065
  8. BIOTIN [Concomitant]
     Route: 065
  9. GLUCOSAMINA [Concomitant]
     Route: 065
  10. FOLIC ACID [Concomitant]
     Route: 065
     Dates: start: 20120425
  11. CRANBERRY EXTRACT [Concomitant]
     Route: 065
  12. REMICADE [Suspect]
     Indication: CROHN'S DISEASE
     Route: 042
     Dates: start: 20100827
  13. VITAMIN D [Concomitant]
     Route: 065

REACTIONS (1)
  - HERPES ZOSTER [None]
